FAERS Safety Report 8958614 (Version 1)
Quarter: 2012Q4

REPORT INFORMATION
  Report Type: Spontaneous
  Country: US (occurrence: None)
  Receive Date: 20121203
  Receipt Date: 20121203
  Transmission Date: 20130627
  Serious: Yes (Hospitalization, Other)
  Sender: FDA-Public Use
  Company Number: 1211-695

PATIENT
  Age: 88 Year
  Sex: Male

DRUGS (7)
  1. EYLEA [Suspect]
     Indication: MACULAR DEGENERATION
  2. LASIX (FUROSEMIDE) [Concomitant]
  3. LISINOPRIL (LISINOPRIL) [Concomitant]
  4. FLOVENT (FLUTICASONE PROPIONATE) [Concomitant]
  5. CRESTOR (ROSUVASTATIN CALCIUM) [Concomitant]
  6. SPIRIVA (TIOTROPIUM BROMIDE) [Concomitant]
  7. PLAVIX (CLOPIDOGREL BISULFATE) [Concomitant]

REACTIONS (1)
  - Cardiac failure congestive [None]
